FAERS Safety Report 8833467 (Version 1)
Quarter: 2012Q4

REPORT INFORMATION
  Report Type: 
  Country: BR (occurrence: BR)
  Receive Date: 20121010
  Receipt Date: 20121010
  Transmission Date: 20130627
  Serious: Yes (Hospitalization, Other)
  Sender: FDA-Public Use
  Company Number: PHHY2012BR071482

PATIENT
  Age: 60 Year
  Sex: Female
  Weight: 64 kg

DRUGS (1)
  1. ENALAPRIL MALEATE [Suspect]
     Indication: HYPERTENSION
     Route: 048
     Dates: start: 20120811, end: 20120811

REACTIONS (5)
  - Mental disorder [Unknown]
  - Throat tightness [Unknown]
  - Nausea [Unknown]
  - Malaise [Unknown]
  - Erythema [Unknown]
